FAERS Safety Report 4976019-9 (Version None)
Quarter: 2006Q2

REPORT INFORMATION
  Report Type: 
  Country: None (occurrence: None)
  Receive Date: 20060418
  Receipt Date: 20050706
  Transmission Date: 20061013
  Serious: Yes (Hospitalization, Other)
  Sender: FDA-Public Use
  Company Number: US-MERCK-0507USA01105

PATIENT
  Age: 62 Year
  Sex: Male
  Weight: 127 kg

DRUGS (11)
  1. ADVAIR DISKUS 100/50 [Concomitant]
     Route: 065
  2. XANAX [Concomitant]
     Route: 065
  3. DARVOCET [Concomitant]
     Route: 065
  4. ASPIRIN [Concomitant]
     Route: 065
  5. AMBIEN [Concomitant]
     Route: 065
  6. FLEXERIL [Concomitant]
     Route: 065
  7. VIOXX [Suspect]
     Indication: ARTHRALGIA
     Route: 048
     Dates: start: 20000101, end: 20040930
  8. CALAN [Concomitant]
     Route: 065
  9. LOPRESSOR [Concomitant]
     Route: 065
  10. ACCUPRIL [Concomitant]
     Route: 065
  11. GLUCOPHAGE [Concomitant]
     Route: 065

REACTIONS (8)
  - ARTERIAL OCCLUSIVE DISEASE [None]
  - CONDUCTION DISORDER [None]
  - FATIGUE [None]
  - HAEMATOMA [None]
  - MITRAL VALVE INCOMPETENCE [None]
  - MYOCARDIAL INFARCTION [None]
  - PULMONARY HYPERTENSION [None]
  - TRICUSPID VALVE INCOMPETENCE [None]
